FAERS Safety Report 9842751 (Version 1)
Quarter: 2014Q1

REPORT INFORMATION
  Report Type: Spontaneous
  Country: ES (occurrence: ES)
  Receive Date: 20140124
  Receipt Date: 20140124
  Transmission Date: 20141002
  Serious: Yes (Hospitalization)
  Sender: FDA-Public Use
  Company Number: ES-009507513-1401ESP006956

PATIENT
  Age: 43 Year
  Sex: Male

DRUGS (1)
  1. PROPECIA 1 MG COMPRIMIDOS RECUBIERTOS CON PEL?CULA [Suspect]
     Route: 048
     Dates: start: 1993, end: 20131209

REACTIONS (1)
  - Pulmonary embolism [Recovered/Resolved]
